FAERS Safety Report 25992743 (Version 5)
Quarter: 2025Q4

REPORT INFORMATION
  Report Type: Report from Study
  Country: EU (occurrence: EU)
  Receive Date: 20251103
  Receipt Date: 20251127
  Transmission Date: 20260117
  Serious: Yes (Hospitalization)
  Sender: ABBVIE
  Company Number: EU-ABBVIE-6483829

PATIENT
  Age: 78 Year
  Sex: Female

DRUGS (11)
  1. FOSCARBIDOPA\FOSLEVODOPA [Suspect]
     Active Substance: FOSCARBIDOPA\FOSLEVODOPA
     Indication: Parkinson^s disease
     Dosage: FREQUENCY: PRODUODOPA BASE RATE?DOSE/UNIT: 1 VIAL? LOW RATE 0.15ML, BASE 0.17ML AND HIGH 0.18ML
     Route: 058
     Dates: start: 20251101
  2. FOSCARBIDOPA\FOSLEVODOPA [Suspect]
     Active Substance: FOSCARBIDOPA\FOSLEVODOPA
     Route: 058
     Dates: start: 20250901, end: 20251020
  3. SINEMET [Concomitant]
     Active Substance: CARBIDOPA\LEVODOPA
     Indication: Product used for unknown indication
     Dosage: AS PER PRESCRIPTION
  4. SINEMET [Concomitant]
     Active Substance: CARBIDOPA\LEVODOPA
     Indication: Product used for unknown indication
     Dosage: SINEMET 12.5MG/50MG @ 0300 WHEN OFF?NIGHT EXTRA
  5. SELEGILINE [Concomitant]
     Active Substance: SELEGILINE
     Indication: Product used for unknown indication
  6. RAMIPRIL [Concomitant]
     Active Substance: RAMIPRIL
     Indication: Product used for unknown indication
  7. CALCIUM CARBONATE [Concomitant]
     Active Substance: CALCIUM CARBONATE
     Indication: Product used for unknown indication
  8. MOVICOL [Concomitant]
     Active Substance: POLYETHYLENE GLYCOL 3350\POTASSIUM CHLORIDE\SODIUM BICARBONATE\SODIUM CHLORIDE
     Indication: Product used for unknown indication
     Dosage: 1 UNITS
  9. SINEMET CR [Concomitant]
     Active Substance: CARBIDOPA\LEVODOPA
     Indication: Product used for unknown indication
     Dosage: NIGHT
  10. SINEMET CR [Concomitant]
     Active Substance: CARBIDOPA\LEVODOPA
     Indication: Product used for unknown indication
     Dosage: 25/100MG AT NIGHT
  11. LACTULOSE [Concomitant]
     Active Substance: LACTULOSE
     Indication: Product used for unknown indication
     Dosage: TIME INTERVAL: 0.33333333 DAYS

REACTIONS (14)
  - Malaise [Not Recovered/Not Resolved]
  - Confusional state [Not Recovered/Not Resolved]
  - On and off phenomenon [Not Recovered/Not Resolved]
  - Limb discomfort [Unknown]
  - Dizziness [Not Recovered/Not Resolved]
  - Feeling abnormal [Unknown]
  - Musculoskeletal stiffness [Not Recovered/Not Resolved]
  - Mobility decreased [Unknown]
  - Anxiety [Unknown]
  - Bradykinesia [Unknown]
  - Device issue [Unknown]
  - Hallucination [Recovered/Resolved]
  - Dysphonia [Unknown]
  - Tremor [Unknown]

NARRATIVE: CASE EVENT DATE: 20250101
